FAERS Safety Report 18310277 (Version 2)
Quarter: 2025Q1

REPORT INFORMATION
  Report Type: Spontaneous
  Country: US (occurrence: US)
  Receive Date: 20200924
  Receipt Date: 20250214
  Transmission Date: 20250409
  Serious: Yes (Disabling, Other)
  Sender: PURDUE
  Company Number: US-PURDUE-USA-2020-0167358

PATIENT
  Age: 27 Year
  Sex: Male

DRUGS (3)
  1. OXYCONTIN [Suspect]
     Active Substance: OXYCODONE HYDROCHLORIDE
     Indication: Product used for unknown indication
     Route: 048
  2. HEROIN [Suspect]
     Active Substance: DIAMORPHINE
     Indication: Product used for unknown indication
     Route: 065
  3. FENTANYL [Suspect]
     Active Substance: FENTANYL
     Indication: Product used for unknown indication
     Route: 065

REACTIONS (20)
  - Jaw fracture [Unknown]
  - Suicidal behaviour [Unknown]
  - Mental impairment [Unknown]
  - Overdose [Unknown]
  - Drug dependence [Unknown]
  - Drug abuse [Unknown]
  - Physical disability [Unknown]
  - Cerebral disorder [Unknown]
  - Judgement impaired [Unknown]
  - Depression [Unknown]
  - Disturbance in attention [Unknown]
  - Emotional distress [Unknown]
  - Developmental delay [Unknown]
  - Asthenia [Unknown]
  - Injury [Unknown]
  - Loss of personal independence in daily activities [Unknown]
  - Physical assault [Unknown]
  - Pain [Unknown]
  - Drug withdrawal syndrome [Unknown]
  - Euphoric mood [Unknown]
